FAERS Safety Report 14615154 (Version 1)
Quarter: 2018Q1

REPORT INFORMATION
  Report Type: Spontaneous
  Country: EC (occurrence: EC)
  Receive Date: 20180308
  Receipt Date: 20180308
  Transmission Date: 20180509
  Serious: Yes (Other)
  Sender: FDA-Public Use
  Company Number: EC-PFIZER INC-2018091103

PATIENT
  Sex: Male

DRUGS (1)
  1. SUTENT [Suspect]
     Active Substance: SUNITINIB MALATE
     Indication: METASTATIC RENAL CELL CARCINOMA
     Dosage: 50 MG, (SCHEME 2:1)

REACTIONS (7)
  - Bradycardia [Unknown]
  - Haematotoxicity [Unknown]
  - Yellow skin [Unknown]
  - Decreased appetite [Unknown]
  - Depression [Unknown]
  - Anaemia [Unknown]
  - Hepatic enzyme increased [Unknown]
